FAERS Safety Report 22088032 (Version 1)
Quarter: 2023Q1

REPORT INFORMATION
  Report Type: Spontaneous
  Country: AU (occurrence: AU)
  Receive Date: 20230313
  Receipt Date: 20230313
  Transmission Date: 20230417
  Serious: Yes (Other)
  Sender: FDA-Public Use
  Company Number: AU-CHEPLA-2023003126

PATIENT
  Age: 72 Year
  Sex: Female

DRUGS (2)
  1. HYDROXYUREA [Suspect]
     Active Substance: HYDROXYUREA
     Indication: Chloroma
  2. METHYLPREDNISOLONE [Suspect]
     Active Substance: METHYLPREDNISOLONE
     Indication: Chloroma
     Dosage: PULSE METHYLPREDNISOLONE

REACTIONS (3)
  - Pancytopenia [Unknown]
  - Tumour lysis syndrome [Unknown]
  - Product use in unapproved indication [Recovered/Resolved]
